FAERS Safety Report 9518950 (Version 1)
Quarter: 2013Q3

REPORT INFORMATION
  Report Type: Spontaneous
  Country: US (occurrence: US)
  Receive Date: 20130912
  Receipt Date: 20130912
  Transmission Date: 20140515
  Serious: No
  Sender: FDA-Public Use
  Company Number: US-PFIZER INC-2013260286

PATIENT
  Age: 61 Year
  Sex: Female
  Weight: 72.56 kg

DRUGS (6)
  1. LYRICA [Suspect]
     Indication: PAIN
     Dosage: 50MG DAILY
  2. GABAPENTIN [Suspect]
     Indication: DIABETIC NEUROPATHY
     Dosage: 600 MG, 3X/DAY
     Dates: start: 2011
  3. GABAPENTIN [Suspect]
     Indication: PAIN
  4. METOPROLOL [Concomitant]
     Indication: PALPITATIONS
     Dosage: 50 MG, 2X/DAY
  5. LOTENSIN [Concomitant]
     Indication: HYPERTENSION
     Dosage: 40 MG, AS NEEDED
  6. JANUVIA [Concomitant]
     Indication: DIABETES MELLITUS
     Dosage: UNK

REACTIONS (4)
  - Pain [Unknown]
  - Paraesthesia [Unknown]
  - Pruritus [Unknown]
  - Drug ineffective [Unknown]
